FAERS Safety Report 8384760-3 (Version None)
Quarter: 2012Q2

REPORT INFORMATION
  Report Type: 
  Country: None (occurrence: None)
  Receive Date: 20120524
  Receipt Date: 20120522
  Transmission Date: 20120825
  Serious: Yes (Death)
  Sender: FDA-Public Use
  Company Number: PA-ROCHE-1070808

PATIENT
  Sex: Female
  Weight: 59.02 kg

DRUGS (1)
  1. ZELBORAF [Suspect]
     Indication: MALIGNANT MELANOMA
     Route: 048
     Dates: start: 20120208, end: 20120508

REACTIONS (3)
  - ANAEMIA [None]
  - NEOPLASM PROGRESSION [None]
  - CARDIAC ARREST [None]
